FAERS Safety Report 8429094 (Version 5)
Quarter: 2015Q1

REPORT INFORMATION
  Report Type: Spontaneous
  Country: US (occurrence: US)
  Receive Date: 20120227
  Receipt Date: 20150316
  Transmission Date: 20150721
  Serious: Yes (Hospitalization, Other)
  Sender: FDA-Public Use
  Company Number: US-009507513-1202USA03511

PATIENT
  Sex: Female

DRUGS (19)
  1. HALCION [Concomitant]
     Active Substance: TRIAZOLAM
     Indication: INSOMNIA
     Dosage: 0.25 MG, UNK
  2. LEVOTHYROXINE SODIUM. [Concomitant]
     Active Substance: LEVOTHYROXINE SODIUM
     Indication: HYPOTHYROIDISM
     Dosage: 125 MICROGRAM, QD
  3. SYNTHROID [Concomitant]
     Active Substance: LEVOTHYROXINE SODIUM
     Indication: HYPOTHYROIDISM
     Dosage: 175 MICROGRAM, QD
     Route: 048
  4. SYNTHROID [Concomitant]
     Active Substance: LEVOTHYROXINE SODIUM
     Dosage: 75 UNK, UNK
     Route: 048
  5. LIPITOR [Concomitant]
     Active Substance: ATORVASTATIN CALCIUM
     Indication: HYPERCHOLESTEROLAEMIA
     Dosage: 60 MG, HS
     Route: 048
  6. LIPITOR [Concomitant]
     Active Substance: ATORVASTATIN CALCIUM
     Dosage: 80 UNK, UNK
     Route: 048
  7. CLARITIN [Concomitant]
     Active Substance: LORATADINE
  8. XANAX [Concomitant]
     Active Substance: ALPRAZOLAM
     Indication: INSOMNIA
     Dosage: 0.25 MG, UNK
  9. DETROL LA [Concomitant]
     Active Substance: TOLTERODINE TARTRATE
     Indication: URINARY INCONTINENCE
     Dosage: 2 MG, HS
  10. SYNTHROID [Concomitant]
     Active Substance: LEVOTHYROXINE SODIUM
     Dosage: 137 UNK, UNK
  11. PREVACID [Concomitant]
     Active Substance: LANSOPRAZOLE
     Indication: GASTROOESOPHAGEAL REFLUX DISEASE
     Dosage: 30 MG, UNK
     Route: 048
  12. ALBUTEROL. [Concomitant]
     Active Substance: ALBUTEROL
     Indication: SEASONAL ALLERGY
  13. ALENDRONATE SODIUM. [Suspect]
     Active Substance: ALENDRONATE SODIUM
     Indication: OSTEOPOROSIS
     Dosage: 70 MG, UNK
     Route: 048
     Dates: start: 200806, end: 201107
  14. SYNTHROID [Concomitant]
     Active Substance: LEVOTHYROXINE SODIUM
     Dosage: 200 MICROGRAM, QD
     Dates: start: 20030903
  15. FOSAMAX [Suspect]
     Active Substance: ALENDRONATE SODIUM
     Indication: OSTEOPOROSIS
     Dosage: 70 MG, UNK
     Route: 048
     Dates: start: 2003, end: 200806
  16. LEVOXYL [Concomitant]
     Active Substance: LEVOTHYROXINE SODIUM
  17. TRAZODONE HYDROCHLORIDE. [Concomitant]
     Active Substance: TRAZODONE HYDROCHLORIDE
     Indication: INSOMNIA
     Dosage: 25 MG, UNK
     Route: 048
     Dates: start: 20050312
  18. L-THYROXIN [Concomitant]
     Active Substance: LEVOTHYROXINE SODIUM
  19. AMBIEN [Concomitant]
     Active Substance: ZOLPIDEM TARTRATE
     Indication: INSOMNIA
     Dosage: UNK
     Dates: start: 20031231

REACTIONS (47)
  - Femur fracture [Unknown]
  - Cardiac murmur [Unknown]
  - Overdose [Unknown]
  - Pollakiuria [Unknown]
  - Drug ineffective [Unknown]
  - Anaemia postoperative [Unknown]
  - Vascular calcification [Unknown]
  - Herpes zoster [Not Recovered/Not Resolved]
  - Rotator cuff syndrome [Unknown]
  - Arthropathy [Unknown]
  - Fatigue [Unknown]
  - Melanocytic naevus [Unknown]
  - Musculoskeletal pain [Unknown]
  - Pulmonary mass [Unknown]
  - Hot flush [Unknown]
  - Wheezing [Unknown]
  - Wheezing [Unknown]
  - Hyperglycaemia [Unknown]
  - Dyspepsia [Unknown]
  - Low turnover osteopathy [Unknown]
  - Diverticulum [Unknown]
  - Muscle spasms [Unknown]
  - Drug ineffective [Unknown]
  - Femur fracture [Recovered/Resolved]
  - Memory impairment [Unknown]
  - Osteoarthritis [Unknown]
  - Osteoarthritis [Unknown]
  - Basal cell carcinoma [Unknown]
  - Osteopenia [Unknown]
  - Feeling jittery [Unknown]
  - Dry skin [Unknown]
  - Fatigue [Unknown]
  - Lower respiratory tract infection [Unknown]
  - Pneumonia [Unknown]
  - Femur fracture [Unknown]
  - Induration [Unknown]
  - Cataract [Unknown]
  - Device failure [Unknown]
  - Tachycardia [Unknown]
  - Fibrous histiocytoma [Unknown]
  - Musculoskeletal pain [Unknown]
  - Osteoarthritis [Unknown]
  - Road traffic accident [Unknown]
  - Feeling jittery [Unknown]
  - Dyspnoea [Unknown]
  - Fibrocystic breast disease [Unknown]
  - Neck pain [Unknown]

NARRATIVE: CASE EVENT DATE: 20030903
